FAERS Safety Report 7319036-6 (Version None)
Quarter: 2011Q1

REPORT INFORMATION
  Report Type: 
  Country: None (occurrence: None)
  Receive Date: 20110228
  Receipt Date: 20110217
  Transmission Date: 20110831
  Serious: Yes (Other)
  Sender: FDA-Public Use
  Company Number: CA-JNJFOC-20110107335

PATIENT
  Age: 37 Year
  Sex: Female
  Weight: 54 kg

DRUGS (2)
  1. MONISTAT [Suspect]
     Route: 067
  2. MONISTAT [Suspect]
     Indication: FUNGAL INFECTION
     Route: 067

REACTIONS (5)
  - FEELING ABNORMAL [None]
  - SYNCOPE [None]
  - VULVOVAGINAL DISCOMFORT [None]
  - VULVOVAGINAL BURNING SENSATION [None]
  - HYPERSENSITIVITY [None]
